FAERS Safety Report 10354388 (Version 2)
Quarter: 2021Q2

REPORT INFORMATION
  Report Type: Spontaneous
  Country: CA (occurrence: CA)
  Receive Date: 20140731
  Receipt Date: 20210531
  Transmission Date: 20210716
  Serious: Yes (Hospitalization)
  Sender: FDA-Public Use
  Company Number: CA-ROCHE-1438917

PATIENT
  Age: 52 Year
  Sex: Female

DRUGS (35)
  1. DIAZEPAM. [Suspect]
     Active Substance: DIAZEPAM
     Route: 065
  2. PROCYCLIDINE HCL [Suspect]
     Active Substance: PROCYCLIDINE HYDROCHLORIDE
     Indication: PRODUCT USED FOR UNKNOWN INDICATION
     Dosage: THERAPY DURATION: 153 DAYS
     Route: 048
  3. BENADRYL [Concomitant]
     Active Substance: DIPHENHYDRAMINE HYDROCHLORIDE
  4. T?20 [Concomitant]
     Active Substance: ENFUVIRTIDE
     Indication: PRODUCT USED FOR UNKNOWN INDICATION
     Route: 065
  5. EPIVAL [Suspect]
     Active Substance: DIVALPROEX SODIUM
     Indication: PRODUCT USED FOR UNKNOWN INDICATION
     Route: 065
  6. OLANZAPINE. [Suspect]
     Active Substance: OLANZAPINE
     Dosage: THERAPY DURATION: 555 DAYS
     Route: 048
  7. CALCIUM CARBONATE. [Concomitant]
     Active Substance: CALCIUM CARBONATE
  8. CHLORAL HYDRATE [Concomitant]
     Active Substance: CHLORAL HYDRATE
  9. ABACAVIR. [Concomitant]
     Active Substance: ABACAVIR
     Indication: PRODUCT USED FOR UNKNOWN INDICATION
  10. TRAZODONE [Suspect]
     Active Substance: TRAZODONE HYDROCHLORIDE
     Indication: DEPRESSION
     Dosage: THERAPY DURATION: 45 DAYS
     Route: 048
  11. QUETIAPINE FUMARATE. [Suspect]
     Active Substance: QUETIAPINE FUMARATE
     Indication: PSYCHOTIC DISORDER
     Route: 048
  12. LACTULOSE. [Concomitant]
     Active Substance: LACTULOSE
  13. ATOVAQUONE/PROGUANIL HYDROCHLORIDE [Concomitant]
     Active Substance: ATOVAQUONE\PROGUANIL HYDROCHLORIDE
     Indication: PRODUCT USED FOR UNKNOWN INDICATION
     Route: 065
  14. SEROQUEL [Suspect]
     Active Substance: QUETIAPINE FUMARATE
     Indication: PRODUCT USED FOR UNKNOWN INDICATION
     Dosage: THERAPY DURATION: 24 DAYS
     Route: 048
  15. LITHIUM. [Concomitant]
     Active Substance: LITHIUM
     Indication: PRODUCT USED FOR UNKNOWN INDICATION
     Route: 065
  16. DIAZEPAM. [Suspect]
     Active Substance: DIAZEPAM
     Indication: DEPRESSION
     Route: 048
  17. ACETAMINOPHEN. [Suspect]
     Active Substance: ACETAMINOPHEN
     Indication: PRODUCT USED FOR UNKNOWN INDICATION
     Dosage: THERAPY DURATION: 644 DAYS
     Route: 048
  18. TEGRETOL [Suspect]
     Active Substance: CARBAMAZEPINE
     Indication: HYPOMANIA
     Dosage: THERAPY DURATION: 10 DAYS
     Route: 065
  19. BISACODYL. [Concomitant]
     Active Substance: BISACODYL
  20. IMODIUM [Concomitant]
     Active Substance: LOPERAMIDE HYDROCHLORIDE
  21. KALETRA [Concomitant]
     Active Substance: LOPINAVIR\RITONAVIR
  22. NYSTATIN. [Concomitant]
     Active Substance: NYSTATIN
  23. CLONAZEPAM. [Suspect]
     Active Substance: CLONAZEPAM
     Indication: HYPOMANIA
     Route: 048
  24. OLANZAPINE. [Suspect]
     Active Substance: OLANZAPINE
     Indication: MUSCULOSKELETAL STIFFNESS
     Dosage: THERAPY DURATION: 555 DAYS
     Route: 048
  25. SERTRALINE [Concomitant]
     Active Substance: SERTRALINE HYDROCHLORIDE
     Indication: PRODUCT USED FOR UNKNOWN INDICATION
  26. DIAZEPAM. [Suspect]
     Active Substance: DIAZEPAM
     Route: 048
  27. RISPERIDONE. [Suspect]
     Active Substance: RISPERIDONE
     Indication: PSYCHOTIC DISORDER
     Dosage: THERAPY DURATION: 47 DAYS
     Route: 048
  28. 3TC [Concomitant]
     Active Substance: LAMIVUDINE
  29. EPIVAL [Suspect]
     Active Substance: DIVALPROEX SODIUM
     Dosage: THERAPY DURATION: 187 DAYS
     Route: 048
  30. EPIVAL [Suspect]
     Active Substance: DIVALPROEX SODIUM
     Dosage: THERAPY DURATION: 187 DAYS
     Route: 048
  31. TIPRANAVIR [Suspect]
     Active Substance: TIPRANAVIR
     Indication: PRODUCT USED FOR UNKNOWN INDICATION
     Dosage: THERAPY DURATION: 788 DAYS
     Route: 048
  32. TRAZODONE [Suspect]
     Active Substance: TRAZODONE HYDROCHLORIDE
     Route: 048
  33. APTIVUS [Suspect]
     Active Substance: TIPRANAVIR
     Indication: HIV INFECTION
     Route: 048
  34. BENADRYL [Concomitant]
     Active Substance: DIPHENHYDRAMINE HYDROCHLORIDE
     Indication: PRODUCT USED FOR UNKNOWN INDICATION
     Route: 065
  35. ENFUVIRTIDE. [Concomitant]
     Active Substance: ENFUVIRTIDE
     Indication: PRODUCT USED FOR UNKNOWN INDICATION
     Route: 048

REACTIONS (12)
  - Hepatotoxicity [Unknown]
  - Jaundice cholestatic [Unknown]
  - Condition aggravated [Unknown]
  - Cholelithiasis [Unknown]
  - Pneumonia [Unknown]
  - Blood bilirubin increased [Unknown]
  - Psychotic disorder [Unknown]
  - Schizophrenia [Unknown]
  - Hepatic enzyme increased [Unknown]
  - Vomiting [Unknown]
  - Hypomania [Unknown]
  - Nausea [Unknown]
